FAERS Safety Report 9404769 (Version 2)
Quarter: 2013Q4

REPORT INFORMATION
  Report Type: Report from Study
  Country: JP (occurrence: JP)
  Receive Date: 20130717
  Receipt Date: 20131125
  Transmission Date: 20140711
  Serious: Yes (Other)
  Sender: FDA-Public Use
  Company Number: JP-VERTEX PHARMACEUTICALS INC-2013-008017

PATIENT
  Age: 27 Year
  Sex: Male

DRUGS (6)
  1. VX-950 (TELAPREVIR) [Suspect]
     Indication: CHRONIC HEPATITIS C
     Dosage: 2250 MG, QD
     Route: 048
     Dates: start: 20120126, end: 20120419
  2. PEGINTERFERON ALFA-2B [Suspect]
     Indication: CHRONIC HEPATITIS C
     Dosage: 1.46 ?G/KG, QW
     Route: 058
     Dates: start: 20120126, end: 20120126
  3. PEGINTERFERON ALFA-2B [Suspect]
     Dosage: 1.10 ?G/KG, QW
     Route: 058
     Dates: start: 20120202, end: 20120202
  4. PEGINTERFERON ALFA-2B [Suspect]
     Dosage: 0.91 ?G/KG, QW
     Route: 058
     Dates: start: 20120209, end: 20120516
  5. PEGINTERFERON ALFA-2B [Suspect]
     Dosage: 1.1 ?G/KG, QW
     Route: 058
     Dates: start: 20120517, end: 20120628
  6. RIBAVIRIN [Concomitant]
     Dosage: 600 MG, QD
     Route: 048
     Dates: start: 20120126

REACTIONS (2)
  - Granulocyte count decreased [Recovered/Resolved]
  - Malaise [Recovered/Resolved]
